FAERS Safety Report 24143038 (Version 1)
Quarter: 2024Q3

REPORT INFORMATION
  Report Type: Spontaneous
  Country: CA (occurrence: CA)
  Receive Date: 20240726
  Receipt Date: 20240726
  Transmission Date: 20241016
  Serious: Yes (Other)
  Sender: SANDOZ
  Company Number: CA-SANDOZ-SDZ2024CA068391

PATIENT
  Age: 38 Year
  Sex: Male

DRUGS (1)
  1. ERELZI [Suspect]
     Active Substance: ETANERCEPT-SZZS
     Indication: Ankylosing spondylitis
     Dosage: 25 MG
     Route: 058

REACTIONS (3)
  - Nasal polyps [Not Recovered/Not Resolved]
  - Pulmonary granuloma [Not Recovered/Not Resolved]
  - Thymoma [Not Recovered/Not Resolved]
